FAERS Safety Report 4840105-4 (Version None)
Quarter: 2006Q1

REPORT INFORMATION
  Report Type: 
  Country: None (occurrence: None)
  Receive Date: 20051125
  Receipt Date: 20051114
  Transmission Date: 20060701
  Serious: Yes (Other)
  Sender: FDA-Public Use
  Company Number: 2005156139

PATIENT
  Age: 40 Year
  Sex: Male
  Weight: 58.9676 kg

DRUGS (4)
  1. BENADRYL [Suspect]
     Dosage: 6 OR 7 TABS, ONCE, ORAL
     Route: 048
     Dates: start: 20051114, end: 20051114
  2. MOTRIN [Suspect]
     Dosage: ONE, ONCE, ORAL
     Route: 048
     Dates: start: 20051114, end: 20051114
  3. THERAFLU [Suspect]
     Dosage: 2, ONCE, ORAL
     Route: 048
     Dates: start: 20051114, end: 20051114
  4. MEDINITE (DEXTROMETHORPHAN HYDROBROMIDE, DOXYLAMINE SUCCINATE, EPHEDRI [Suspect]
     Dosage: ONCE, ORAL
     Route: 048
     Dates: start: 20051114, end: 20051114

REACTIONS (3)
  - DIZZINESS [None]
  - OVERDOSE [None]
  - RETCHING [None]
